FAERS Safety Report 18113686 (Version 2)
Quarter: 2021Q4

REPORT INFORMATION
  Report Type: Spontaneous
  Country: NL (occurrence: NL)
  Receive Date: 20200805
  Receipt Date: 20211029
  Transmission Date: 20220304
  Serious: Yes (Life-Threatening, Hospitalization, Other)
  Sender: FDA-Public Use
  Company Number: None

PATIENT
  Age: 16 Year
  Sex: Female

DRUGS (6)
  1. NITROGLYCERIN [Suspect]
     Active Substance: NITROGLYCERIN
     Indication: Product used for unknown indication
     Dosage: UNK
     Route: 042
  2. AMOXICILLIN\CLAVULANIC ACID [Suspect]
     Active Substance: AMOXICILLIN\CLAVULANIC ACID
     Indication: Product used for unknown indication
     Dosage: 1875 MILLIGRAM, QD, 625MG THREE TIMES PER DAY
     Route: 065
  3. PREDNISONE [Suspect]
     Active Substance: PREDNISONE
     Indication: Product used for unknown indication
     Dosage: UNK
  4. EPINEPHRINE [Suspect]
     Active Substance: EPINEPHRINE
     Indication: Product used for unknown indication
     Dosage: UNK
     Route: 042
  5. CLEMASTINE [Suspect]
     Active Substance: CLEMASTINE
     Indication: Product used for unknown indication
     Dosage: UNK
  6. EPINEPHRINE [Suspect]
     Active Substance: EPINEPHRINE
     Indication: Product used for unknown indication
     Dosage: 0.25 MILLIGRAM
     Route: 042

REACTIONS (12)
  - Anaphylactic shock [Unknown]
  - Electrocardiogram ST segment elevation [Unknown]
  - Troponin T increased [Unknown]
  - Hyperhidrosis [Recovered/Resolved]
  - Dysphagia [Unknown]
  - Acute coronary syndrome [Unknown]
  - Arteriospasm coronary [Unknown]
  - Dyspnoea [Unknown]
  - Lip swelling [Unknown]
  - Hypotension [Unknown]
  - Rash erythematous [Unknown]
  - Erythema [Unknown]
